FAERS Safety Report 25908142 (Version 5)
Quarter: 2025Q4

REPORT INFORMATION
  Report Type: Spontaneous
  Country: CN (occurrence: CN)
  Receive Date: 20251010
  Receipt Date: 20251201
  Transmission Date: 20260117
  Serious: Yes (Hospitalization)
  Sender: MERCK SHARP & DOHME LLC
  Company Number: CN-009507513-2335545

PATIENT
  Sex: Male
  Weight: 50 kg

DRUGS (16)
  1. PEMBROLIZUMAB [Suspect]
     Active Substance: PEMBROLIZUMAB
     Indication: Non-small cell lung cancer
     Dosage: 200 MG
     Route: 042
     Dates: start: 20250507, end: 20250507
  2. PEMETREXED [Suspect]
     Active Substance: PEMETREXED
     Indication: Non-small cell lung cancer
     Dosage: 740 MG
     Route: 042
     Dates: start: 20250507, end: 20250507
  3. CARBOPLATIN [Suspect]
     Active Substance: CARBOPLATIN
     Indication: Non-small cell lung cancer
     Dosage: 378 MG
     Route: 042
     Dates: start: 20250507, end: 20250507
  4. DICLOFENAC [Concomitant]
     Active Substance: DICLOFENAC
     Dates: start: 2023
  5. METFORMIN HYDROCHLORIDE [Concomitant]
     Active Substance: METFORMIN HYDROCHLORIDE
     Dates: start: 2024
  6. ACARBOSE [Concomitant]
     Active Substance: ACARBOSE
     Dates: start: 202505
  7. IRBESARTAN [Concomitant]
     Active Substance: IRBESARTAN
     Dates: start: 20250502
  8. DEXAMETHASONE ACETATE [Concomitant]
     Active Substance: DEXAMETHASONE ACETATE
     Dates: start: 20250521
  9. GLUTATHIONE [Concomitant]
     Active Substance: GLUTATHIONE
     Dates: start: 20250521
  10. BIFIDOBACTERIUM LONGUM [Concomitant]
     Active Substance: BIFIDOBACTERIUM LONGUM
     Dates: start: 20250729
  11. CORDYCEP [Concomitant]
     Dates: start: 20250825
  12. LOPERAMIDE HYDROCHLORIDE [Concomitant]
     Active Substance: LOPERAMIDE HYDROCHLORIDE
     Dates: start: 20250925, end: 20250925
  13. MULTIPLE ELECTROLYTES, SODIUM ACETATE AND GLUCOSE [Concomitant]
     Dates: start: 20250930
  14. PIPERACILLIN AND TAZOBACTAM [Concomitant]
     Active Substance: PIPERACILLIN SODIUM\TAZOBACTAM SODIUM
     Dates: start: 20250930
  15. INSULIN ASPART [Concomitant]
     Active Substance: INSULIN ASPART
     Dates: start: 20250930, end: 20251003
  16. FOLIC ACID [Concomitant]
     Active Substance: FOLIC ACID
     Dates: start: 20250430

REACTIONS (1)
  - Blood creatinine increased [Recovered/Resolved]

NARRATIVE: CASE EVENT DATE: 20250930
